FAERS Safety Report 5672615-4 (Version None)
Quarter: 2008Q1

REPORT INFORMATION
  Report Type: 
  Country: None (occurrence: None)
  Receive Date: 20080319
  Receipt Date: 20080311
  Transmission Date: 20080703
  Serious: Yes (Life-Threatening, Disabling, Other)
  Sender: FDA-Public Use
  Company Number: PHBS2008EC03228

PATIENT
  Age: 66 Year
  Sex: Female

DRUGS (1)
  1. ACLASTA [Suspect]
     Indication: OSTEOPOROSIS

REACTIONS (7)
  - ASTHENIA [None]
  - BONE PAIN [None]
  - HEADACHE [None]
  - MYALGIA [None]
  - PYREXIA [None]
  - SENSE OF OPPRESSION [None]
  - VOMITING [None]
